FAERS Safety Report 5259415-4 (Version None)
Quarter: 2007Q1

REPORT INFORMATION
  Report Type: 
  Country: None (occurrence: None)
  Receive Date: 20070305
  Receipt Date: 20070123
  Transmission Date: 20070707
  Serious: Yes (Other)
  Sender: FDA-Public Use
  Company Number: 07011996

PATIENT
  Age: 52 Year
  Sex: Female

DRUGS (2)
  1. PHENYTOIN SODIUM [Suspect]
     Indication: CONVULSION
     Dosage: 100 MG, BID, ORAL
     Route: 048
     Dates: start: 20061201, end: 20070123
  2. DILANTIN [Suspect]
     Indication: CONVULSION
     Dosage: 30 MG, QD, ORAL
     Route: 048

REACTIONS (2)
  - ANTICONVULSANT DRUG LEVEL INCREASED [None]
  - DRUG THERAPY CHANGED [None]
